FAERS Safety Report 4674678-1 (Version None)
Quarter: 2005Q2

REPORT INFORMATION
  Report Type: 
  Country: None (occurrence: None)
  Receive Date: 20050526
  Receipt Date: 20050519
  Transmission Date: 20051028
  Serious: Yes (Hospitalization)
  Sender: FDA-Public Use
  Company Number: CH-GLAXOSMITHKLINE-B0382249A

PATIENT
  Age: 53 Year
  Sex: Male

DRUGS (4)
  1. ZINAT [Suspect]
     Route: 065
     Dates: start: 20050207, end: 20050217
  2. FRAXIFORTE [Suspect]
     Indication: DRUG USE FOR UNKNOWN INDICATION
     Route: 058
     Dates: start: 20050131, end: 20050217
  3. ENALAPRIL MALEATE [Concomitant]
     Route: 048
  4. DICLOFENAC SODIUM [Concomitant]
     Route: 048

REACTIONS (4)
  - LEUKOCYTOCLASTIC VASCULITIS [None]
  - PAIN [None]
  - PRURITUS [None]
  - SKIN LESION [None]
